FAERS Safety Report 7103722-7 (Version None)
Quarter: 2010Q4

REPORT INFORMATION
  Report Type: 
  Country: None (occurrence: None)
  Receive Date: 20101115
  Receipt Date: 20040524
  Transmission Date: 20110411
  Serious: Yes (Death)
  Sender: FDA-Public Use
  Company Number: AU-GENENTECH-309594

PATIENT

DRUGS (1)
  1. MABTHERA [Suspect]
     Indication: NON-HODGKIN'S LYMPHOMA
     Dosage: 1 G, UNK
     Route: 065

REACTIONS (1)
  - MYELODYSPLASTIC SYNDROME [None]
